FAERS Safety Report 21930867 (Version 1)
Quarter: 2023Q1

REPORT INFORMATION
  Report Type: Spontaneous
  Country: US (occurrence: None)
  Receive Date: 20230130
  Receipt Date: 20230130
  Transmission Date: 20230418
  Serious: Yes (Hospitalization)
  Sender: FDA-Public Use
  Company Number: None

PATIENT
  Age: 8 Year
  Sex: Female

DRUGS (1)
  1. TOBRAMYCIN [Suspect]
     Active Substance: TOBRAMYCIN
     Indication: Pseudomonas infection
     Dosage: FREQUENCY : TWICE A DAY;?
     Route: 055
     Dates: start: 20221209

REACTIONS (2)
  - Urinary tract infection [None]
  - Unevaluable event [None]

NARRATIVE: CASE EVENT DATE: 20230123
